FAERS Safety Report 17745690 (Version 1)
Quarter: 2020Q2

REPORT INFORMATION
  Report Type: Spontaneous
  Country: US (occurrence: US)
  Receive Date: 20200505
  Receipt Date: 20200505
  Transmission Date: 20200714
  Serious: Yes (Hospitalization)
  Sender: FDA-Public Use
  Company Number: None

PATIENT
  Age: 53 Year
  Sex: Female

DRUGS (1)
  1. EMPAGLIFLOZIN [Suspect]
     Active Substance: EMPAGLIFLOZIN
     Indication: DIABETES MELLITUS
     Route: 048
     Dates: start: 20160303, end: 20200429

REACTIONS (5)
  - Vaginal haemorrhage [None]
  - Haematuria [None]
  - Hypersensitivity [None]
  - Urosepsis [None]
  - Urinary tract infection [None]

NARRATIVE: CASE EVENT DATE: 20200429
